FAERS Safety Report 5799882-0 (Version None)
Quarter: 2008Q3

REPORT INFORMATION
  Report Type: 
  Country: None (occurrence: None)
  Receive Date: 20080701
  Receipt Date: 20080625
  Transmission Date: 20090109
  Serious: Yes (Death)
  Sender: FDA-Public Use
  Company Number: 2008AL007505

PATIENT
  Age: 80 Year
  Sex: Female
  Weight: 70.3075 kg

DRUGS (1)
  1. DIGOXIN [Suspect]
     Dosage: 0.125MG DAILY PO
     Route: 048
     Dates: start: 20061101

REACTIONS (4)
  - ABDOMINAL SEPSIS [None]
  - ATRIAL FIBRILLATION [None]
  - MALAISE [None]
  - RHEUMATOID ARTHRITIS [None]
